FAERS Safety Report 20552646 (Version 2)
Quarter: 2022Q2

REPORT INFORMATION
  Report Type: Spontaneous
  Country: DE (occurrence: DE)
  Receive Date: 20220304
  Receipt Date: 20220404
  Transmission Date: 20220721
  Serious: No
  Sender: FDA-Public Use
  Company Number: DE-009507513-2202DEU007763

PATIENT
  Age: 96 Year
  Sex: Male

DRUGS (1)
  1. LAGEVRIO [Suspect]
     Active Substance: CELLULOSE, MICROCRYSTALLINE\CROSCARMELLOSE SODIUM\FERRIC OXIDE RED\HYPROMELLOSES\HYPROMELLOSES\MAGNE
     Indication: COVID-19
     Dosage: UNK
     Route: 048
     Dates: start: 20220221

REACTIONS (2)
  - Dysphagia [Not Recovered/Not Resolved]
  - Wrong technique in product usage process [Unknown]

NARRATIVE: CASE EVENT DATE: 20220201
